FAERS Safety Report 5896724-X (Version None)
Quarter: 2008Q3

REPORT INFORMATION
  Report Type: 
  Country: None (occurrence: None)
  Receive Date: 20080924
  Receipt Date: 20080707
  Transmission Date: 20090109
  Serious: Yes (Other)
  Sender: FDA-Public Use
  Company Number: US-ASTRAZENECA-2007UW27340

PATIENT
  Age: 589 Month
  Sex: Female
  Weight: 68 kg

DRUGS (6)
  1. SEROQUEL [Suspect]
     Indication: BIPOLAR DISORDER
     Dosage: 25MG, 200MG, + 300MG
     Route: 048
     Dates: start: 20040701, end: 20070901
  2. SEROQUEL [Suspect]
     Indication: DEPRESSION
     Dosage: 25MG, 200MG, + 300MG
     Route: 048
     Dates: start: 20040701, end: 20070901
  3. HALDOL [Concomitant]
  4. RISPERDAL [Concomitant]
  5. BENZTROPINE MESYLATE [Concomitant]
  6. ALPRAZOLAM [Concomitant]

REACTIONS (3)
  - BLOOD CHOLESTEROL INCREASED [None]
  - DIABETES MELLITUS [None]
  - PANCREATITIS [None]
